FAERS Safety Report 20889525 (Version 1)
Quarter: 2022Q2

REPORT INFORMATION
  Report Type: Spontaneous
  Country: DE (occurrence: DE)
  Receive Date: 20220530
  Receipt Date: 20220530
  Transmission Date: 20220721
  Serious: Yes (Death, Hospitalization)
  Sender: FDA-Public Use
  Company Number: None

PATIENT
  Age: 70 Year
  Sex: Male
  Weight: 105 kg

DRUGS (1)
  1. KEYTRUDA [Suspect]
     Active Substance: PEMBROLIZUMAB
     Indication: Neoplasm malignant
     Dosage: 200MG
     Route: 042
     Dates: start: 20220426

REACTIONS (3)
  - Multiple organ dysfunction syndrome [Fatal]
  - Aortic thrombosis [Unknown]
  - Aortitis [Unknown]

NARRATIVE: CASE EVENT DATE: 20220509
